FAERS Safety Report 4640033-3 (Version None)
Quarter: 2005Q2

REPORT INFORMATION
  Report Type: 
  Country: None (occurrence: None)
  Receive Date: 20050415
  Receipt Date: 20050415
  Transmission Date: 20051028
  Serious: Yes (Disabling)
  Sender: FDA-Public Use
  Company Number: None

PATIENT
  Age: 52 Year
  Sex: Male
  Weight: 92.5338 kg

DRUGS (8)
  1. ENBREL [Suspect]
     Indication: PSORIATIC ARTHROPATHY
     Dosage: TWICE WEEKLY
     Dates: start: 20040303, end: 20041111
  2. ATENOLOL [Concomitant]
  3. LISINOPRIL [Concomitant]
  4. SULFASALAZINE [Concomitant]
  5. CELEBREX [Concomitant]
  6. TRAZADON [Concomitant]
  7. ULTRAM [Concomitant]
  8. TOPICORT [Concomitant]

REACTIONS (8)
  - BALANCE DISORDER [None]
  - BURNING SENSATION [None]
  - DEMYELINATION [None]
  - HYPOAESTHESIA [None]
  - IMPAIRED WORK ABILITY [None]
  - MYELITIS TRANSVERSE [None]
  - OPTIC NEURITIS [None]
  - VISION BLURRED [None]
